FAERS Safety Report 7983717-1 (Version None)
Quarter: 2011Q4

REPORT INFORMATION
  Report Type: 
  Country: None (occurrence: None)
  Receive Date: 20111215
  Receipt Date: 20111206
  Transmission Date: 20120403
  Serious: Yes (Disabling)
  Sender: FDA-Public Use
  Company Number: JP-ASTRAZENECA-2011SE74622

PATIENT
  Age: 54 Year
  Sex: Male

DRUGS (3)
  1. AMARYL [Concomitant]
     Dates: start: 20100716
  2. CRESTOR [Suspect]
     Route: 048
     Dates: start: 20080204
  3. ACTOS [Concomitant]
     Dates: start: 20100813

REACTIONS (1)
  - PLEURAL EFFUSION [None]
